FAERS Safety Report 9269182 (Version 2)
Quarter: 2013Q2

REPORT INFORMATION
  Report Type: Spontaneous
  Country: US (occurrence: US)
  Receive Date: 20130503
  Receipt Date: 20130531
  Transmission Date: 20140414
  Serious: No
  Sender: FDA-Public Use
  Company Number: US-009507513-1305USA000709

PATIENT
  Sex: Male

DRUGS (2)
  1. TIMOPTIC XE [Suspect]
     Indication: GLAUCOMA
     Dosage: 1 DROP IN EACH EYE, QAM
     Route: 047
     Dates: end: 201303
  2. ALPHAGAN [Concomitant]

REACTIONS (2)
  - Eye infection [Recovered/Resolved]
  - Ocular hyperaemia [Recovered/Resolved]
